FAERS Safety Report 15503210 (Version 1)
Quarter: 2018Q4

REPORT INFORMATION
  Report Type: Spontaneous
  Country: US (occurrence: US)
  Receive Date: 20181008
  Receipt Date: 20181008
  Transmission Date: 20190205
  Serious: Yes (Other)
  Sender: FDA-Public Use
  Company Number: None

PATIENT
  Age: 38 Year
  Sex: Female

DRUGS (2)
  1. BUPRENORPHINE - NALOXONE, 8-2 MG [Suspect]
     Active Substance: BUPRENORPHINE\NALOXONE
     Indication: DRUG DEPENDENCE
     Route: 048
     Dates: start: 20180920, end: 20181008
  2. BUPRENORPHINE NALOXONE [Concomitant]
     Active Substance: BUPRENORPHINE\NALOXONE
     Dates: start: 20180829, end: 20180920

REACTIONS (4)
  - Drug effect incomplete [None]
  - Drug dependence [None]
  - Drug level decreased [None]
  - Product solubility abnormal [None]

NARRATIVE: CASE EVENT DATE: 20180920
